FAERS Safety Report 16488699 (Version 1)
Quarter: 2019Q2

REPORT INFORMATION
  Report Type: Spontaneous
  Country: US (occurrence: US)
  Receive Date: 20190627
  Receipt Date: 20190627
  Transmission Date: 20190711
  Serious: No
  Sender: FDA-Public Use
  Company Number: US-009507513-1906USA010210

PATIENT
  Age: 62 Year
  Sex: Female

DRUGS (2)
  1. COZAAR [Suspect]
     Active Substance: LOSARTAN POTASSIUM
     Indication: HYPERTENSION
     Dosage: UNK, QD
     Route: 048
     Dates: end: 201906
  2. INSULIN [Concomitant]
     Active Substance: INSULIN NOS

REACTIONS (4)
  - Hypertension [Not Recovered/Not Resolved]
  - Product dose omission [Unknown]
  - Intercepted medication error [Unknown]
  - Product dispensing error [Unknown]

NARRATIVE: CASE EVENT DATE: 201906
